FAERS Safety Report 5088346-8 (Version None)
Quarter: 2006Q3

REPORT INFORMATION
  Report Type: 
  Country: None (occurrence: None)
  Receive Date: 20060822
  Receipt Date: 20050302
  Transmission Date: 20061208
  Serious: Yes (Death, Life-Threatening, Hospitalization)
  Sender: FDA-Public Use
  Company Number: 20050200052

PATIENT
  Age: 79 Year
  Sex: Female

DRUGS (3)
  1. ATIVAN [Suspect]
     Dates: start: 20050201, end: 20050201
  2. OXYGEN (OXYGEN) [Suspect]
     Indication: DYSPNOEA
     Dates: start: 20050201, end: 20050201
  3. CONJUGATED ESTROGENS [Suspect]

REACTIONS (1)
  - DYSPNOEA [None]
